FAERS Safety Report 5750514-7 (Version None)
Quarter: 2008Q2

REPORT INFORMATION
  Report Type: 
  Country: None (occurrence: None)
  Receive Date: 20080528
  Receipt Date: 20080519
  Transmission Date: 20081010
  Serious: Yes (Hospitalization)
  Sender: FDA-Public Use
  Company Number: CH-WYE-H04239208

PATIENT
  Age: 55 Year
  Sex: Male

DRUGS (4)
  1. SUPRAX [Suspect]
     Indication: ACUTE SINUSITIS
     Route: 048
     Dates: start: 20080428, end: 20080428
  2. BUDESONIDE [Suspect]
     Indication: ACUTE SINUSITIS
     Dosage: UNKNOWN
     Route: 045
     Dates: start: 20080428, end: 20080428
  3. PONSTAN [Suspect]
     Indication: ACUTE SINUSITIS
     Route: 048
     Dates: start: 20080427, end: 20080427
  4. LIDOCAINE 2% [Suspect]
     Indication: ACUTE SINUSITIS
     Dosage: UNKNOWN
     Route: 049
     Dates: start: 20080428, end: 20080428

REACTIONS (2)
  - DYSPNOEA [None]
  - STRIDOR [None]
